FAERS Safety Report 18404596 (Version 1)
Quarter: 2020Q4

REPORT INFORMATION
  Report Type: Spontaneous
  Country: KR (occurrence: KR)
  Receive Date: 20201020
  Receipt Date: 20201020
  Transmission Date: 20210114
  Serious: Yes (Hospitalization, Other)
  Sender: FDA-Public Use
  Company Number: KR-MACLEODS PHARMACEUTICALS US LTD-MAC2020028683

PATIENT

DRUGS (1)
  1. IBANDRONATE [Suspect]
     Active Substance: IBANDRONATE SODIUM
     Indication: OSTEOPOROSIS
     Dosage: 3 MILLIGRAM, EVERY 3 MONTHS
     Route: 042

REACTIONS (3)
  - Femoral neck fracture [Recovering/Resolving]
  - Bone metabolism disorder [Recovering/Resolving]
  - Atypical femur fracture [Recovering/Resolving]
